FAERS Safety Report 5193101-4 (Version None)
Quarter: 2006Q4

REPORT INFORMATION
  Report Type: 
  Country: None (occurrence: None)
  Receive Date: 20061228
  Receipt Date: 20060426
  Transmission Date: 20070319
  Serious: No
  Sender: FDA-Public Use
  Company Number: US-GLAXOSMITHKLINE-A0603399A

PATIENT
  Age: 66 Year
  Sex: Female

DRUGS (8)
  1. AVODART [Suspect]
     Dosage: .5MG PER DAY
     Route: 048
     Dates: start: 20051101, end: 20051201
  2. TESTOSTERONE [Concomitant]
  3. ESTROGENS SOL/INJ [Concomitant]
  4. THYROID TAB [Concomitant]
  5. UNKNOWN MEDICATION [Concomitant]
  6. OMEPRAZOLE [Concomitant]
  7. PROGESTERONE [Concomitant]
  8. TESTOSTERONE [Concomitant]

REACTIONS (2)
  - DRUG INEFFECTIVE [None]
  - OFF LABEL USE [None]
